FAERS Safety Report 20791960 (Version 13)
Quarter: 2023Q4

REPORT INFORMATION
  Report Type: Spontaneous
  Country: US (occurrence: US)
  Receive Date: 20220505
  Receipt Date: 20231020
  Transmission Date: 20240109
  Serious: No
  Sender: FDA-Public Use
  Company Number: US-PFIZER INC-202101096729

PATIENT
  Age: 80 Year
  Sex: Female
  Weight: 67.59 kg

DRUGS (4)
  1. RETACRIT [Suspect]
     Active Substance: EPOETIN ALFA-EPBX
     Indication: Nephrogenic anaemia
     Dosage: 10000 IU, ONCE MONTHLY
     Route: 058
  2. RETACRIT [Suspect]
     Active Substance: EPOETIN ALFA-EPBX
     Indication: Anaemia
     Dosage: 20000 IU
  3. RETACRIT [Suspect]
     Active Substance: EPOETIN ALFA-EPBX
     Dosage: 10000 IU (DISP: 3 ML), EVERY 30 DAYS
     Route: 058
  4. RETACRIT [Suspect]
     Active Substance: EPOETIN ALFA-EPBX
     Dosage: 10000 IU (1 ML), EVERY 30 DAYS

REACTIONS (2)
  - Urticaria [Unknown]
  - Body height decreased [Unknown]
